FAERS Safety Report 7903080-1 (Version None)
Quarter: 2011Q4

REPORT INFORMATION
  Report Type: 
  Country: None (occurrence: None)
  Receive Date: 20111107
  Receipt Date: 20111028
  Transmission Date: 20120403
  Serious: Yes (Hospitalization)
  Sender: FDA-Public Use
  Company Number: 2011SP051344

PATIENT
  Age: 30 Year
  Sex: Female

DRUGS (4)
  1. CYMBALTA [Suspect]
     Indication: PROCEDURAL PAIN
     Dosage: 60 MG;QD;PO
     Route: 048
     Dates: start: 20101001, end: 20111001
  2. LIBRAX [Suspect]
     Indication: FUNCTIONAL GASTROINTESTINAL DISORDER
     Dosage: TID;PO
     Route: 048
     Dates: start: 20101001, end: 20111001
  3. CARBOSYLANE (CARBOSYLANE) [Suspect]
     Indication: DYSPEPSIA
     Dosage: QD;PO
     Route: 048
     Dates: start: 20101001, end: 20111001
  4. CERAZETTE (DESOGESTREL /00754001/) [Suspect]
     Indication: ORAL CONTRACEPTION
     Dosage: 0.075 MG;QD;PO
     Route: 048
     Dates: start: 20101001

REACTIONS (5)
  - CHEST PAIN [None]
  - REGURGITATION [None]
  - OESOPHAGEAL ULCER [None]
  - PSEUDOMEMBRANOUS COLITIS [None]
  - DYSPHAGIA [None]
